FAERS Safety Report 15578375 (Version 1)
Quarter: 2018Q4

REPORT INFORMATION
  Report Type: Spontaneous
  Country: BR (occurrence: BR)
  Receive Date: 20181102
  Receipt Date: 20181102
  Transmission Date: 20190205
  Serious: Yes (Death, Other)
  Sender: FDA-Public Use
  Company Number: BR-ROCHE-1927160

PATIENT
  Age: 26 Year
  Sex: Female
  Weight: 51 kg

DRUGS (12)
  1. DIGESAN [Concomitant]
     Active Substance: BROMOPRIDE
     Route: 065
  2. TRAMAL [Concomitant]
     Active Substance: TRAMADOL
     Route: 065
  3. DIPYRONE [Concomitant]
     Active Substance: DIPYRONE
     Route: 065
  4. PACLITAXEL. [Suspect]
     Active Substance: PACLITAXEL
     Indication: OVARIAN EPITHELIAL CANCER
     Route: 065
  5. AMITRIPTYLINE [Concomitant]
     Active Substance: AMITRIPTYLINE
     Route: 065
  6. CARBOPLATIN. [Suspect]
     Active Substance: CARBOPLATIN
     Indication: OVARIAN EPITHELIAL CANCER
     Route: 065
  7. SANDRENA [Concomitant]
     Active Substance: ESTRADIOL
     Route: 065
  8. PANTOPRAZOLE [Concomitant]
     Active Substance: PANTOPRAZOLE
     Route: 065
  9. DOMPERIDONE [Concomitant]
     Active Substance: DOMPERIDONE
     Route: 065
  10. AVASTIN [Suspect]
     Active Substance: BEVACIZUMAB
     Indication: OVARIAN EPITHELIAL CANCER
     Route: 042
     Dates: start: 20141010
  11. LIPOSOMAL DOXORUBICIN [Suspect]
     Active Substance: DOXORUBICIN HYDROCHLORIDE
     Indication: OVARIAN EPITHELIAL CANCER
     Route: 065
  12. TAXOL [Suspect]
     Active Substance: PACLITAXEL
     Indication: OVARIAN EPITHELIAL CANCER
     Route: 065

REACTIONS (13)
  - Subileus [Unknown]
  - Urinary tract infection [Unknown]
  - Nausea [Unknown]
  - Off label use [Unknown]
  - Death [Fatal]
  - Proteinuria [Unknown]
  - Positron emission tomogram abnormal [Unknown]
  - Performance status decreased [Unknown]
  - Intentional product use issue [Unknown]
  - Peripheral sensory neuropathy [Unknown]
  - Malnutrition [Unknown]
  - Carbohydrate antigen 125 increased [Unknown]
  - Abdominal mass [Unknown]

NARRATIVE: CASE EVENT DATE: 20151113
